FAERS Safety Report 8292077-0 (Version None)
Quarter: 2012Q2

REPORT INFORMATION
  Report Type: 
  Country: None (occurrence: None)
  Receive Date: 20120417
  Receipt Date: 20111121
  Transmission Date: 20120825
  Serious: No
  Sender: FDA-Public Use
  Company Number: US-ASTRAZENECA-2010SE54284

PATIENT
  Age: 78 Year
  Sex: Female
  Weight: 68 kg

DRUGS (9)
  1. NEXIUM [Suspect]
     Indication: GASTROOESOPHAGEAL REFLUX DISEASE
     Route: 048
     Dates: start: 20060101
  2. BUSPAR [Concomitant]
  3. LISINOPRIL [Concomitant]
     Indication: CARDIAC DISORDER
  4. NEXIUM [Suspect]
     Route: 048
     Dates: start: 20101112
  5. SINGULAIR [Concomitant]
  6. PREDNISONE [Concomitant]
  7. AVAPRO [Concomitant]
  8. IRON [Concomitant]
  9. NEXIUM [Suspect]
     Route: 048
     Dates: start: 20060101

REACTIONS (3)
  - ABDOMINAL DISCOMFORT [None]
  - OFF LABEL USE [None]
  - DYSGEUSIA [None]
